FAERS Safety Report 6434708-3 (Version None)
Quarter: 2009Q4

REPORT INFORMATION
  Report Type: 
  Country: None (occurrence: None)
  Receive Date: 20091109
  Receipt Date: 20091109
  Transmission Date: 20100525
  Serious: No
  Sender: FDA-Public Use
  Company Number: None

PATIENT
  Age: 61 Year
  Sex: Female
  Weight: 90.9 kg

DRUGS (11)
  1. SUTENT [Suspect]
     Indication: BREAST CANCER
     Dosage: 25 MG QD PO
     Route: 048
     Dates: start: 20090826, end: 20091105
  2. PACLITAXEL [Suspect]
     Indication: BREAST CANCER
     Dosage: 162 MG WEEKLY IV BOLUS
     Route: 040
     Dates: start: 20090909, end: 20091105
  3. ZOCOR [Concomitant]
  4. MULTI-VITAMIN [Concomitant]
  5. ALENDRONATE [Concomitant]
  6. ASPIRIN [Concomitant]
  7. CALCIUM WITH VITAMIN D [Concomitant]
  8. ZYRTEC [Concomitant]
  9. OMEPRAZOLE [Concomitant]
  10. EXFORGE [Concomitant]
  11. GLUCOSAMINE CHONDROITIN [Concomitant]

REACTIONS (6)
  - CHEST PAIN [None]
  - DEHYDRATION [None]
  - FLUID INTAKE REDUCED [None]
  - HYPOPHAGIA [None]
  - NAUSEA [None]
  - VOMITING [None]
